FAERS Safety Report 6649772-6 (Version None)
Quarter: 2010Q1

REPORT INFORMATION
  Report Type: 
  Country: None (occurrence: None)
  Receive Date: 20100322
  Receipt Date: 20100309
  Transmission Date: 20100710
  Serious: Yes (Congenital Anomaly)
  Sender: FDA-Public Use
  Company Number: A0137694A

PATIENT
  Sex: Male
  Weight: 3.5834 kg

DRUGS (3)
  1. AMERGE [Suspect]
     Indication: MIGRAINE
     Dosage: TRANSPLACENTARY
     Route: 064
     Dates: start: 20000424
  2. IMITREX [Suspect]
     Indication: MIGRAINE
     Dosage: TRANSPLACENTARY
     Route: 064
     Dates: start: 20000424
  3. PROPRANOLOL HYDROCHLORIDE [Concomitant]

REACTIONS (2)
  - MATERNAL DRUGS AFFECTING FOETUS [None]
  - VENTRICULAR SEPTAL DEFECT [None]
